FAERS Safety Report 4728723-5 (Version None)
Quarter: 2005Q3

REPORT INFORMATION
  Report Type: 
  Country: None (occurrence: None)
  Receive Date: 20050729
  Receipt Date: 20050722
  Transmission Date: 20060218
  Serious: Yes (Hospitalization)
  Sender: FDA-Public Use
  Company Number: 2005CG01281

PATIENT
  Age: 81 Year
  Sex: Female

DRUGS (6)
  1. ZESTRIL [Suspect]
     Indication: CARDIOMYOPATHY
     Route: 048
     Dates: end: 20050624
  2. ESIDRIX [Interacting]
     Indication: CARDIOMYOPATHY
     Route: 048
     Dates: start: 20050615, end: 20050622
  3. BUMETANIDE [Interacting]
     Indication: CARDIOMYOPATHY
     Route: 048
     Dates: start: 20050615, end: 20050622
  4. ALDACTONE [Interacting]
     Indication: CARDIOMYOPATHY
     Route: 048
     Dates: end: 20050622
  5. DIGOXIN [Concomitant]
     Indication: CARDIOMYOPATHY
     Dosage: 0.125 MG 5 DAYS PER WEEK
     Route: 048
     Dates: end: 20050622
  6. CORDARONE [Concomitant]
     Indication: CARDIOMYOPATHY
     Dosage: 200 MG 5 DAYS PER WEEK
     Route: 048
     Dates: start: 20050101

REACTIONS (5)
  - DRUG INTERACTION [None]
  - DYSPNOEA [None]
  - FALL [None]
  - HEADACHE [None]
  - HYPONATRAEMIA [None]
